FAERS Safety Report 8625413-3 (Version None)
Quarter: 2012Q3

REPORT INFORMATION
  Report Type: 
  Country: None (occurrence: None)
  Receive Date: 20120827
  Receipt Date: 20120820
  Transmission Date: 20120928
  Serious: Yes (Other)
  Sender: FDA-Public Use
  Company Number: PHHY2012GB071891

PATIENT
  Age: 61 Year
  Sex: Female
  Weight: 78.46 kg

DRUGS (6)
  1. ATORVASTATIN [Suspect]
     Route: 048
     Dates: start: 20120710, end: 20120731
  2. DIPYRIDAMOLE [Suspect]
  3. PERINDOPRIL [Suspect]
  4. AMLODIPINE [Suspect]
  5. SIMVASTATIN [Suspect]
     Route: 048
     Dates: start: 20120310
  6. ACETYLSALICYLIC ACID SRT [Suspect]
     Dosage: 75 MG, UNK

REACTIONS (3)
  - RENAL DISORDER [None]
  - ABDOMINAL PAIN [None]
  - MYALGIA [None]
